FAERS Safety Report 6441622-6 (Version None)
Quarter: 2009Q4

REPORT INFORMATION
  Report Type: 
  Country: None (occurrence: None)
  Receive Date: 20091116
  Receipt Date: 20091104
  Transmission Date: 20100525
  Serious: Yes (Other)
  Sender: FDA-Public Use
  Company Number: JP-AMGEN-US367315

PATIENT
  Age: 62 Year
  Sex: Female

DRUGS (5)
  1. ENBREL [Suspect]
     Indication: RHEUMATOID ARTHRITIS
     Dosage: UNKNOWN
     Route: 058
  2. TACROLIMUS [Concomitant]
     Dosage: UNSPECIFIED
     Route: 065
  3. PREDNISOLONE [Concomitant]
     Route: 048
     Dates: end: 20080401
  4. PREDNISOLONE [Concomitant]
     Route: 048
     Dates: start: 20080401
  5. UNSPECIFIED MEDICATION [Concomitant]
     Route: 065

REACTIONS (1)
  - PNEUMONIA CRYPTOCOCCAL [None]
